FAERS Safety Report 24194841 (Version 1)
Quarter: 2024Q3

REPORT INFORMATION
  Report Type: Report from Study
  Country: US (occurrence: None)
  Receive Date: 20240809
  Receipt Date: 20240809
  Transmission Date: 20241017
  Serious: Yes (Other)
  Sender: ASTRAZENECA
  Company Number: 2024A176128

PATIENT
  Sex: Female
  Weight: 88 kg

DRUGS (1)
  1. LYNPARZA [Suspect]
     Active Substance: OLAPARIB
     Indication: Breast cancer
     Route: 048
     Dates: start: 20220508

REACTIONS (3)
  - Pulmonary toxicity [Unknown]
  - Pneumonia [Unknown]
  - Fatigue [Unknown]
